FAERS Safety Report 8559176-7 (Version None)
Quarter: 2012Q3

REPORT INFORMATION
  Report Type: 
  Country: None (occurrence: None)
  Receive Date: 20120720
  Receipt Date: 20120705
  Transmission Date: 20120928
  Serious: Yes (Death, Life-Threatening, Hospitalization)
  Sender: FDA-Public Use
  Company Number: 2012MPI00198

PATIENT
  Age: 71 Year
  Sex: Female

DRUGS (6)
  1. BRENTUXIMAB VEDOTIN (BRENTUXIMAB VEDOTIN) INJECTION [Suspect]
     Indication: HODGKIN'S DISEASE
     Dosage: 1.8 MG/KG, QCYCLE, INTRAVENOUS
     Route: 042
     Dates: start: 20120227, end: 20120227
  2. GRANISETRON HCL [Concomitant]
  3. SODIUM CHLORIDE [Concomitant]
  4. ACETAMINOPHEN [Concomitant]
  5. TAVEGIL (CLEMASTINE FUMARATE) [Concomitant]
  6. RANITIDINE HCL [Concomitant]

REACTIONS (12)
  - CARDIOPULMONARY FAILURE [None]
  - DIARRHOEA [None]
  - CLOSTRIDIUM TEST POSITIVE [None]
  - TACHYARRHYTHMIA [None]
  - ACUTE CORONARY SYNDROME [None]
  - HYPOTENSION [None]
  - CYTOMEGALOVIRUS COLITIS [None]
  - PNEUMONIA [None]
  - RESPIRATORY FAILURE [None]
  - ILEUS [None]
  - PSEUDOMEMBRANOUS COLITIS [None]
  - CARDIAC FAILURE [None]
